FAERS Safety Report 6424328-9 (Version None)
Quarter: 2009Q4

REPORT INFORMATION
  Report Type: 
  Country: None (occurrence: None)
  Receive Date: 20091103
  Receipt Date: 20091023
  Transmission Date: 20100525
  Serious: Yes (Hospitalization)
  Sender: FDA-Public Use
  Company Number: US-BIOGENIDEC-2009BI018511

PATIENT
  Age: 65 Year
  Sex: Female

DRUGS (6)
  1. TYSABRI [Suspect]
     Indication: MULTIPLE SCLEROSIS
     Route: 042
     Dates: start: 20080509
  2. OXYBUTYNIN XL [Concomitant]
  3. OXYBUTYNIN XL [Concomitant]
  4. COZAAR [Concomitant]
     Route: 048
     Dates: start: 20071010
  5. NEURONTIN [Concomitant]
     Route: 048
     Dates: start: 20080930
  6. BACLOFEN [Concomitant]
     Route: 048
     Dates: start: 20090207

REACTIONS (9)
  - ARTHROPATHY [None]
  - FALL [None]
  - JOINT DISLOCATION [None]
  - LETHARGY [None]
  - LOSS OF CONTROL OF LEGS [None]
  - MEMORY IMPAIRMENT [None]
  - MENISCUS LESION [None]
  - MENTAL STATUS CHANGES [None]
  - OVERDOSE [None]
